FAERS Safety Report 23670215 (Version 1)
Quarter: 2024Q1

REPORT INFORMATION
  Report Type: Spontaneous
  Country: US (occurrence: US)
  Receive Date: 20240325
  Receipt Date: 20240325
  Transmission Date: 20240410
  Serious: Yes (Death, Hospitalization, Other)
  Sender: FDA-Public Use
  Company Number: US-SUN PHARMACEUTICAL INDUSTRIES LTD-2024R1-437820

PATIENT
  Age: 70 Year
  Sex: Male

DRUGS (12)
  1. CEFEPIME [Suspect]
     Active Substance: CEFEPIME HYDROCHLORIDE
     Indication: Lung opacity
     Dosage: UNK
     Route: 065
  2. VANCOMYCIN [Suspect]
     Active Substance: VANCOMYCIN
     Indication: Lung opacity
     Dosage: UNK
     Route: 065
  3. CLINDAMYCIN [Suspect]
     Active Substance: CLINDAMYCIN
     Indication: Lung opacity
     Dosage: UNK
     Route: 065
  4. EPINEPHRINE [Suspect]
     Active Substance: EPINEPHRINE
     Indication: Acute respiratory distress syndrome
     Dosage: UNK
     Route: 065
  5. PYRAZINAMIDE [Suspect]
     Active Substance: PYRAZINAMIDE
     Indication: Renal replacement therapy
     Dosage: UNK
     Route: 065
  6. ISONIAZID [Suspect]
     Active Substance: ISONIAZID
     Indication: Renal replacement therapy
     Dosage: UNK
     Route: 065
  7. LEVOPHED [Suspect]
     Active Substance: NOREPINEPHRINE BITARTRATE
     Indication: Respiratory distress
     Dosage: UNK
     Route: 065
  8. VASOPRESSIN [Suspect]
     Active Substance: VASOPRESSIN
     Indication: Respiratory distress
     Dosage: UNK
     Route: 065
  9. FLAGYL [Suspect]
     Active Substance: METRONIDAZOLE\METRONIDAZOLE HYDROCHLORIDE
     Indication: Respiratory distress
     Dosage: UNK
     Route: 065
  10. HYDROCORTISONE [Suspect]
     Active Substance: HYDROCORTISONE
     Indication: Renal replacement therapy
     Dosage: UNK
     Route: 065
  11. RIFAMPIN [Suspect]
     Active Substance: RIFAMPIN
     Indication: Renal replacement therapy
     Dosage: UNK
     Route: 065
  12. ETHAMBUTOL [Suspect]
     Active Substance: ETHAMBUTOL HYDROCHLORIDE
     Indication: Renal replacement therapy
     Dosage: UNK
     Route: 065

REACTIONS (12)
  - Acute respiratory distress syndrome [Fatal]
  - Acid fast bacilli infection [Fatal]
  - Tuberculosis [Fatal]
  - Condition aggravated [Unknown]
  - Paralysis [Unknown]
  - Mechanical ventilation complication [Unknown]
  - Oliguria [Unknown]
  - Therapy non-responder [Unknown]
  - Acid fast bacilli infection [Unknown]
  - Haemodynamic instability [Unknown]
  - Acidosis [Unknown]
  - Mycobacterium tuberculosis complex test positive [Unknown]
